FAERS Safety Report 5012951-8 (Version None)
Quarter: 2006Q2

REPORT INFORMATION
  Report Type: 
  Country: None (occurrence: None)
  Receive Date: 20060530
  Receipt Date: 20060411
  Transmission Date: 20061013
  Serious: Yes (Other)
  Sender: FDA-Public Use
  Company Number: 2006GB00633

PATIENT
  Age: 4589 Day
  Sex: Male
  Weight: 40 kg

DRUGS (4)
  1. QUETIAPINE FUMARATE [Suspect]
     Indication: HYPOMANIA
     Dosage: DOSE INCREASED TO 100 MG BID
     Route: 048
     Dates: start: 20060410, end: 20060420
  2. QUETIAPINE FUMARATE [Suspect]
     Indication: MOOD ALTERED
     Dosage: DOSE INCREASED TO 100 MG BID
     Route: 048
     Dates: start: 20060410, end: 20060420
  3. QUETIAPINE FUMARATE [Suspect]
     Indication: PSYCHOTIC DISORDER
     Dosage: DOSE INCREASED TO 100 MG BID
     Route: 048
     Dates: start: 20060410, end: 20060420
  4. FLUOXETINE [Concomitant]
     Indication: DEPRESSION
     Route: 048
     Dates: start: 20060101, end: 20060501

REACTIONS (4)
  - CATAPLEXY [None]
  - CATATONIA [None]
  - CONDITION AGGRAVATED [None]
  - NEUROLEPTIC MALIGNANT SYNDROME [None]
